FAERS Safety Report 4507791-X (Version None)
Quarter: 2004Q4

REPORT INFORMATION
  Report Type: 
  Country: None (occurrence: None)
  Receive Date: 20041123
  Receipt Date: 20031106
  Transmission Date: 20050328
  Serious: Yes (Hospitalization, Other)
  Sender: FDA-Public Use
  Company Number: PHEH2003US10278

PATIENT
  Sex: Female

DRUGS (3)
  1. AREDIA [Suspect]
     Indication: ARTHRITIS
     Dosage: UNK/Q3MOS
     Dates: start: 20030801
  2. VITAMIN D [Concomitant]
  3. CALCIUM [Concomitant]

REACTIONS (8)
  - ASTHENIA [None]
  - CONDITION AGGRAVATED [None]
  - DIZZINESS [None]
  - FEELING ABNORMAL [None]
  - HEADACHE [None]
  - HEART RATE INCREASED [None]
  - SYNCOPE [None]
  - TRANSIENT ISCHAEMIC ATTACK [None]
